FAERS Safety Report 14649222 (Version 1)
Quarter: 2018Q1

REPORT INFORMATION
  Report Type: Spontaneous
  Country: US (occurrence: US)
  Receive Date: 20180316
  Receipt Date: 20180316
  Transmission Date: 20180509
  Serious: No
  Sender: FDA-Public Use
  Company Number: US-JUBILANT CADISTA PHARMACEUTICALS-2018JUB00023

PATIENT
  Age: 81 Year
  Sex: Male

DRUGS (2)
  1. IRBESARTAN. [Suspect]
     Active Substance: IRBESARTAN
     Dosage: UNK
     Route: 048
     Dates: start: 201801
  2. IRBESARTAN. [Suspect]
     Active Substance: IRBESARTAN
     Indication: BLOOD PRESSURE ABNORMAL
     Dosage: 150 MG, 1X/DAY
     Route: 048
     Dates: start: 20171202, end: 201801

REACTIONS (3)
  - Blood pressure increased [Recovering/Resolving]
  - Drug effect decreased [Not Recovered/Not Resolved]
  - Intentional product misuse [Not Recovered/Not Resolved]
